FAERS Safety Report 11336740 (Version 2)
Quarter: 2016Q3

REPORT INFORMATION
  Report Type: Report from Study
  Country: JP (occurrence: JP)
  Receive Date: 20150804
  Receipt Date: 20160921
  Transmission Date: 20161109
  Serious: Yes (Hospitalization, Other)
  Sender: FDA-Public Use
  Company Number: JP-MERCK-1508JPN001213

PATIENT
  Age: 68 Year
  Sex: Male

DRUGS (11)
  1. INTELENCE [Suspect]
     Active Substance: ETRAVIRINE
     Indication: HIV INFECTION
     Dosage: 400 MG, QD; DIVIDED DOSE FREQUENCY UNKNOWN
     Route: 048
     Dates: start: 20120903
  2. CELSENTRI [Suspect]
     Active Substance: MARAVIROC
     Indication: HIV INFECTION
     Dosage: 600 MG, QD; DIVIDED DOSE FREQUENCY UNKNOWN
     Route: 048
     Dates: start: 20110425, end: 20120902
  3. CELSENTRI [Suspect]
     Active Substance: MARAVIROC
     Dosage: 1200 MG, QD; DIVIDED DOSE FREQUENCY UNKNOWN
     Route: 048
     Dates: start: 20120903
  4. BAYASPIRIN [Concomitant]
     Active Substance: ASPIRIN
     Indication: RETINAL VEIN THROMBOSIS
     Dosage: 100 MG, QD. FORMULATION: POR
     Route: 048
  5. PRONON [Concomitant]
     Active Substance: PROPAFENONE
     Indication: ARRHYTHMIA
     Dosage: 100 MG, TID. FORMULATION: POR
     Route: 048
  6. BERIZYM (ASPERGILLUS ORYZAE EXTRACT (+) CELLULASE (+) LIPASE (+) PANCR [Concomitant]
     Indication: PROPHYLAXIS
     Dosage: 1 G, TID. FORMULATION: GRA
     Route: 048
  7. ALLEGRA [Concomitant]
     Active Substance: FEXOFENADINE HYDROCHLORIDE
     Indication: PROPHYLAXIS
     Dosage: 60 MG, BID. FORMULATION: POR
     Route: 048
  8. AMLODIN (AMLODIPINE BESYLATE) [Concomitant]
     Active Substance: AMLODIPINE BESYLATE
     Indication: HYPERTENSION
     Dosage: 5 MG, QD. FORMULATION: POR
     Route: 048
     Dates: end: 20140804
  9. RALTEGRAVIR POTASSIUM [Suspect]
     Active Substance: RALTEGRAVIR POTASSIUM
     Indication: HIV INFECTION
     Dosage: 800 MG, QD; DIVIDED DOSE FREQUENCY UNKNOWN
     Route: 048
     Dates: start: 20110425
  10. OLMETEC [Concomitant]
     Active Substance: OLMESARTAN MEDOXOMIL
     Indication: HYPERTENSION
     Dosage: 20-40 MG, QD; DAILY DOSE UNKNOWN. FORMULATION: POR
     Route: 048
     Dates: end: 20140804
  11. MAGLAX (MAGNESIUM OXIDE) [Concomitant]
     Active Substance: MAGNESIUM OXIDE
     Indication: PROPHYLAXIS
     Dosage: 500 MG, TID. FORMULATION: POR
     Route: 048

REACTIONS (4)
  - Prerenal failure [Recovered/Resolved]
  - Dehydration [Recovered/Resolved]
  - Vomiting [Unknown]
  - Nasopharyngitis [Unknown]

NARRATIVE: CASE EVENT DATE: 201407
